FAERS Safety Report 9921168 (Version 2)
Quarter: 2014Q1

REPORT INFORMATION
  Report Type: Spontaneous
  Country: MO (occurrence: MO)
  Receive Date: 20140225
  Receipt Date: 20140306
  Transmission Date: 20141002
  Serious: Yes (Other)
  Sender: FDA-Public Use
  Company Number: MO-AMGEN-MACSP2014012950

PATIENT
  Sex: 0

DRUGS (2)
  1. ENBREL [Suspect]
     Indication: PRODUCT USED FOR UNKNOWN INDICATION
     Dosage: UNK
     Route: 065
  2. METHOTREXATE [Concomitant]
     Dosage: UNK

REACTIONS (2)
  - Loss of consciousness [Recovering/Resolving]
  - Pyrexia [Recovering/Resolving]
